FAERS Safety Report 8444846-1 (Version None)
Quarter: 2012Q2

REPORT INFORMATION
  Report Type: 
  Country: None (occurrence: None)
  Receive Date: 20120618
  Receipt Date: 20120613
  Transmission Date: 20120825
  Serious: Yes (Other)
  Sender: FDA-Public Use
  Company Number: PHHY2011CA099847

PATIENT
  Sex: Female

DRUGS (1)
  1. GILENYA [Suspect]
     Indication: RELAPSING-REMITTING MULTIPLE SCLEROSIS
     Dosage: 0.5 MG, DAILY
     Route: 048
     Dates: start: 20111108

REACTIONS (7)
  - STRESS [None]
  - WEIGHT DECREASED [None]
  - BURNOUT SYNDROME [None]
  - FATIGUE [None]
  - BLOOD PRESSURE DECREASED [None]
  - MIGRAINE [None]
  - BALANCE DISORDER [None]
